FAERS Safety Report 6893837-0 (Version None)
Quarter: 2010Q3

REPORT INFORMATION
  Report Type: 
  Country: None (occurrence: None)
  Receive Date: 20100802
  Receipt Date: 20100723
  Transmission Date: 20110219
  Serious: No
  Sender: FDA-Public Use
  Company Number: US-BIOGENIDEC-2010BI023507

PATIENT
  Age: 51 Year
  Sex: Female

DRUGS (1)
  1. TYSABRI [Suspect]
     Indication: MULTIPLE SCLEROSIS
     Route: 042
     Dates: start: 20100617

REACTIONS (22)
  - ABDOMINAL DISTENSION [None]
  - ALOPECIA [None]
  - CONTUSION [None]
  - DIARRHOEA [None]
  - DYSPHAGIA [None]
  - FATIGUE [None]
  - FEELING ABNORMAL [None]
  - FLUID RETENTION [None]
  - HYPOAESTHESIA [None]
  - MALAISE [None]
  - MOBILITY DECREASED [None]
  - MUSCLE SPASMS [None]
  - NAUSEA [None]
  - PAIN [None]
  - PAIN IN EXTREMITY [None]
  - PROCTALGIA [None]
  - SKIN LESION [None]
  - SWELLING FACE [None]
  - TEMPERATURE INTOLERANCE [None]
  - THROAT TIGHTNESS [None]
  - VISUAL IMPAIRMENT [None]
  - VOMITING [None]
